FAERS Safety Report 7285718-8 (Version None)
Quarter: 2011Q1

REPORT INFORMATION
  Report Type: 
  Country: None (occurrence: None)
  Receive Date: 20110210
  Receipt Date: 20110209
  Transmission Date: 20110831
  Serious: Yes (Death)
  Sender: FDA-Public Use
  Company Number: B0699023A

PATIENT
  Age: 20 Year
  Sex: Male

DRUGS (2)
  1. DEPAKENE [Concomitant]
  2. LAMICTAL [Suspect]
     Route: 065

REACTIONS (3)
  - HEPATIC FAILURE [None]
  - RASH [None]
  - DEATH [None]
